FAERS Safety Report 6774138-8 (Version None)
Quarter: 2010Q2

REPORT INFORMATION
  Report Type: 
  Country: None (occurrence: None)
  Receive Date: 20100617
  Receipt Date: 20100607
  Transmission Date: 20101027
  Serious: No
  Sender: FDA-Public Use
  Company Number: US-JNJFOC-20100602978

PATIENT
  Sex: Female
  Weight: 74.84 kg

DRUGS (7)
  1. FENTANYL [Suspect]
     Indication: NEUROPATHY PERIPHERAL
     Route: 062
  2. FENTANYL [Suspect]
     Indication: INTERVERTEBRAL DISC PROTRUSION
     Route: 062
  3. FENTANYL [Suspect]
     Indication: PAIN
     Route: 062
  4. SEROQUEL [Concomitant]
     Indication: BIPOLAR DISORDER
     Route: 048
  5. LAMICTAL [Concomitant]
     Indication: AFFECTIVE DISORDER
     Route: 048
  6. DEPAKOTE [Concomitant]
     Indication: DEPRESSION
     Route: 048
  7. XANAX [Concomitant]
     Indication: ANXIETY
     Route: 048

REACTIONS (1)
  - WRONG TECHNIQUE IN DRUG USAGE PROCESS [None]
